FAERS Safety Report 4834203-9 (Version None)
Quarter: 2005Q4

REPORT INFORMATION
  Report Type: 
  Country: None (occurrence: None)
  Receive Date: 20051115
  Receipt Date: 20051103
  Transmission Date: 20060501
  Serious: Yes (Hospitalization)
  Sender: FDA-Public Use
  Company Number: 2005S1000452

PATIENT
  Age: 44 Year
  Sex: Male
  Weight: 81.6475 kg

DRUGS (8)
  1. DELATESTRYL (TESTOSTERONE ENANTATE) (200 DP) [Suspect]
     Indication: BLOOD TESTOSTERONE DECREASED
     Dosage: SEE IMAGE
     Route: 030
     Dates: start: 20040101, end: 20050201
  2. DELATESTRYL (TESTOSTERONE ENANTATE) (200 DP) [Suspect]
     Indication: BLOOD TESTOSTERONE DECREASED
     Dosage: SEE IMAGE
     Route: 030
     Dates: start: 20050201, end: 20050601
  3. DELATESTRYL (TESTOSTERONE ENANTATE) (200 DP) [Suspect]
     Indication: BLOOD TESTOSTERONE DECREASED
     Dosage: SEE IMAGE
     Route: 030
     Dates: start: 20050601, end: 20050601
  4. DELATESTRYL (TESTOSTERONE ENANTATE) (200 DP) [Suspect]
     Indication: BLOOD TESTOSTERONE DECREASED
     Dosage: SEE IMAGE
     Route: 030
     Dates: start: 20050601
  5. PLAQUENIL [Suspect]
     Indication: SARCOIDOSIS
     Dosage: PO
     Route: 048
     Dates: start: 20041201, end: 20050101
  6. PREDNISONE [Suspect]
     Indication: SKIN ULCER
     Dosage: PO
     Route: 048
     Dates: start: 20050301, end: 20050101
  7. CORTICOSTEROIDS, DERMATOLOGICAL PREPARATIONS (CORTICOSTEROIDS, DERMATO [Suspect]
     Indication: SKIN ULCER
     Dosage: TDER
     Route: 062
     Dates: start: 20050101, end: 20050101
  8. ALLERGY SHOTS (NOS) [Concomitant]

REACTIONS (7)
  - ANXIETY [None]
  - BACTERIAL INFECTION [None]
  - PALPITATIONS [None]
  - SARCOIDOSIS [None]
  - SKIN INFECTION [None]
  - SKIN ULCER [None]
  - VIRAL INFECTION [None]
